FAERS Safety Report 23215868 (Version 1)
Quarter: 2023Q4

REPORT INFORMATION
  Report Type: Spontaneous
  Country: US (occurrence: US)
  Receive Date: 20231122
  Receipt Date: 20231122
  Transmission Date: 20240110
  Serious: Yes (Hospitalization)
  Sender: FDA-Public Use
  Company Number: US-SPECGX-T202302231

PATIENT
  Age: 33 Year
  Sex: Female

DRUGS (1)
  1. METHADONE [Suspect]
     Active Substance: METHADONE HYDROCHLORIDE
     Indication: Product used for unknown indication
     Dosage: 170 MILLIGRAM, QD
     Route: 065

REACTIONS (5)
  - Suicide attempt [Unknown]
  - Overdose [Recovering/Resolving]
  - Hypoglycaemia [Recovering/Resolving]
  - Adrenal insufficiency [Unknown]
  - Miosis [Recovering/Resolving]
